FAERS Safety Report 8708279 (Version 2)
Quarter: 2012Q4

REPORT INFORMATION
  Report Type: 
  Country: US (occurrence: US)
  Receive Date: 20120806
  Receipt Date: 20121115
  Transmission Date: 20130627
  Serious: Yes (Hospitalization, Other)
  Sender: FDA-Public Use
  Company Number: US-JNJFOC-20120712698

PATIENT
  Age: 72 Year
  Sex: Female
  Weight: 58.97 kg

DRUGS (27)
  1. DURAGESIC [Suspect]
     Indication: PROCEDURAL PAIN
     Route: 062
  2. DURAGESIC [Suspect]
     Indication: PROCEDURAL PAIN
     Route: 062
  3. DURAGESIC [Suspect]
     Indication: PROCEDURAL PAIN
     Route: 062
  4. DURAGESIC [Suspect]
     Indication: PROCEDURAL PAIN
     Route: 062
  5. UNSPECIFIED INGREDIENT [Suspect]
     Indication: PROCEDURAL PAIN
     Route: 062
  6. NORVASC [Concomitant]
     Indication: HYPERTENSION
     Route: 048
  7. NORVASC [Concomitant]
     Indication: CARDIAC DISORDER
     Route: 048
  8. PROTONIX [Concomitant]
     Indication: GASTROOESOPHAGEAL REFLUX DISEASE
     Route: 048
  9. PROTONIX [Concomitant]
     Indication: MUSCLE SPASMS
     Route: 048
  10. LASIX [Concomitant]
     Indication: OEDEMA PERIPHERAL
     Route: 048
  11. LASIX [Concomitant]
     Indication: HYPERTENSION
     Route: 048
  12. POTASSIUM [Concomitant]
     Indication: MEDICAL DIET
     Route: 048
  13. ATIVAN [Concomitant]
     Indication: ANXIETY
     Route: 048
  14. FIORINAL NOS [Concomitant]
     Indication: HEADACHE
     Route: 048
  15. DAPSONE [Concomitant]
     Indication: FOOD ALLERGY
     Route: 048
     Dates: start: 1997
  16. DAPSONE [Concomitant]
     Indication: MULTIPLE ALLERGIES
     Route: 048
     Dates: start: 1997
  17. OXYCODONE [Concomitant]
     Indication: BREAKTHROUGH PAIN
     Route: 065
     Dates: start: 1999
  18. AN UNKNOWN MEDICATION [Concomitant]
     Indication: MEDICAL DIET
     Route: 048
  19. ECOTRIN [Concomitant]
     Indication: PRODUCT USED FOR UNKNOWN INDICATION
     Route: 048
  20. AN UNKNOWN MEDICATION [Concomitant]
     Indication: MIGRAINE
     Route: 048
  21. FLEXERIL [Concomitant]
     Indication: MUSCLE SPASMS
     Route: 048
  22. MAALOX [Concomitant]
     Indication: ABDOMINAL RIGIDITY
     Dosage: 2 CAPSULE WITH MEALS
     Route: 048
  23. PERCODAN [Concomitant]
     Indication: PAIN
     Dosage: 1-2 TABLETS
     Route: 048
  24. SPIRIVA [Concomitant]
     Indication: DYSPNOEA
     Dosage: 1 puff
     Route: 065
  25. SPIRIVA [Concomitant]
     Indication: DYSPNOEA
     Dosage: 18 MCG/PUFF
     Route: 065
  26. VITAMIN C [Concomitant]
     Indication: MEDICAL DIET
     Route: 048
  27. VITAMIN D [Concomitant]
     Indication: MEDICAL DIET
     Route: 048

REACTIONS (12)
  - Procedural pain [Unknown]
  - Coronary artery disease [Unknown]
  - Fibromyalgia [Unknown]
  - Emphysema [Not Recovered/Not Resolved]
  - Chronic obstructive pulmonary disease [Not Recovered/Not Resolved]
  - Immune system disorder [Not Recovered/Not Resolved]
  - Intervertebral disc degeneration [Not Recovered/Not Resolved]
  - Breakthrough pain [Not Recovered/Not Resolved]
  - Wrong technique in drug usage process [Not Recovered/Not Resolved]
  - Product quality issue [Unknown]
  - Product adhesion issue [None]
  - Product substitution issue [None]
